FAERS Safety Report 9820348 (Version 1)
Quarter: 2013Q4

REPORT INFORMATION
  Report Type: Spontaneous
  Country: US (occurrence: None)
  Receive Date: 20131028
  Receipt Date: 20131028
  Transmission Date: 20140711
  Serious: Yes (Other)
  Sender: FDA-Public Use
  Company Number: SYM-2013-06751

PATIENT
  Age: 73 Year
  Sex: Female

DRUGS (2)
  1. BUPROPION HYDROCHLORIDE [Suspect]
     Indication: PRODUCT USED FOR UNKNOWN INDICATION
     Dates: end: 2011
  2. MULTIPLE MEDICATION (OTHER THERAPEUTIC PRODUCTS) (NULL) [Concomitant]

REACTIONS (1)
  - Deafness bilateral [None]
